FAERS Safety Report 9158550 (Version 1)
Quarter: 2013Q1

REPORT INFORMATION
  Report Type: Spontaneous
  Country: BA (occurrence: BA)
  Receive Date: 20130312
  Receipt Date: 20130312
  Transmission Date: 20140127
  Serious: Yes (Other)
  Sender: FDA-Public Use
  Company Number: BA-PFIZER INC-2013058950

PATIENT
  Age: 36 Year
  Sex: Male

DRUGS (1)
  1. TRITACE [Suspect]
     Dosage: 5 MG, 1X/DAY
     Route: 048
     Dates: start: 20130207, end: 20130207

REACTIONS (10)
  - Hypersensitivity [Recovered/Resolved]
  - Pruritus [Recovered/Resolved]
  - Abdominal pain [Recovered/Resolved]
  - Nausea [Recovered/Resolved]
  - Erythema [Recovered/Resolved]
  - Swollen tongue [Recovered/Resolved]
  - Hyperhidrosis [Recovered/Resolved]
  - Fatigue [Unknown]
  - Chest pain [Unknown]
  - Blood pressure inadequately controlled [Unknown]
